FAERS Safety Report 6551132-3 (Version None)
Quarter: 2010Q1

REPORT INFORMATION
  Report Type: 
  Country: None (occurrence: None)
  Receive Date: 20100121
  Receipt Date: 20100105
  Transmission Date: 20100710
  Serious: Yes (Life-Threatening, Hospitalization)
  Sender: FDA-Public Use
  Company Number: UK336047

PATIENT
  Sex: Female
  Weight: 63.5 kg

DRUGS (10)
  1. KINERET [Suspect]
     Indication: STILL'S DISEASE ADULT ONSET
     Dosage: (100 MG SUBCUTANEOUS)
     Route: 058
     Dates: start: 20081126, end: 20081219
  2. KINERET [Suspect]
     Indication: STILL'S DISEASE ADULT ONSET
     Dosage: (100 MG SUBCUTANEOUS)
     Route: 058
     Dates: start: 20081231, end: 20090103
  3. PARACETAMOL [Concomitant]
  4. NEXIUM [Concomitant]
  5. HYDROCORTISONE [Concomitant]
  6. ANTIBIOTICS () [Concomitant]
  7. OMEPRAZOLE [Concomitant]
  8. VANCOMYCIN [Concomitant]
  9. TAZOCILLINE [Concomitant]
  10. VFEND [Concomitant]

REACTIONS (26)
  - ARTHRALGIA [None]
  - ASTHENIA [None]
  - BACK PAIN [None]
  - CHILLS [None]
  - CONSTIPATION [None]
  - CYTOLYTIC HEPATITIS [None]
  - HAEMORRHOIDS [None]
  - HEPATOSPLENOMEGALY [None]
  - HYPOALBUMINAEMIA [None]
  - HYPOMAGNESAEMIA [None]
  - LEUKOPENIA [None]
  - LIVEDO RETICULARIS [None]
  - LUNG DISORDER [None]
  - LUNG NEOPLASM [None]
  - LYMPHADENOPATHY [None]
  - LYMPHOPENIA [None]
  - MALAISE [None]
  - MICROCYTIC ANAEMIA [None]
  - MYALGIA [None]
  - NAUSEA [None]
  - PETECHIAE [None]
  - PURPURA [None]
  - PYREXIA [None]
  - TENDON PAIN [None]
  - THROMBOCYTOPENIA [None]
  - TOXIC SKIN ERUPTION [None]
